FAERS Safety Report 21330401 (Version 2)
Quarter: 2022Q3

REPORT INFORMATION
  Report Type: Report from Study
  Country: US (occurrence: US)
  Receive Date: 20220913
  Receipt Date: 20220921
  Transmission Date: 20221027
  Serious: Yes (Hospitalization, Other)
  Sender: FDA-Public Use
  Company Number: US-CELGENE-USA-20210706093

PATIENT
  Age: 77 Year
  Sex: Female
  Weight: 83.3 kg

DRUGS (7)
  1. POMALIDOMIDE [Suspect]
     Active Substance: POMALIDOMIDE
     Indication: Plasma cell myeloma
     Route: 048
     Dates: start: 20210305
  2. POMALIDOMIDE [Suspect]
     Active Substance: POMALIDOMIDE
     Route: 048
     Dates: end: 20210713
  3. ELOTUZUMAB [Suspect]
     Active Substance: ELOTUZUMAB
     Indication: Plasma cell myeloma
     Dosage: FREQUENCY TEXT: D1,8,15 AND 22?10 MILLIGRAM/KILOGRAM (800 MG)
     Route: 042
     Dates: start: 20210305
  4. ELOTUZUMAB [Suspect]
     Active Substance: ELOTUZUMAB
     Dosage: FREQUENCY TEXT: D1 OF SUBSEQUENT CYCLES?20 MILLIGRAM/KILOGRAM
     Route: 042
     Dates: end: 20210622
  5. DEXAMETHASONE [Suspect]
     Active Substance: DEXAMETHASONE
     Indication: Plasma cell myeloma
     Dosage: FREQUENCY TEXT: BEFORE ELOTUZUMAB?8 MILLIGRAM
     Route: 048
     Dates: start: 20210305
  6. DEXAMETHASONE [Suspect]
     Active Substance: DEXAMETHASONE
     Dosage: FREQUENCY TEXT: BEFORE ELOTUZUMAB?8 MILLIGRAM
     Route: 048
     Dates: start: 20210305
  7. DEXAMETHASONE [Suspect]
     Active Substance: DEXAMETHASONE
     Dosage: FREQUENCY TEXT: ON WEEKS OF NO ELOTUZUMAB?20 MILLIGRAM
     Route: 065
     Dates: start: 20210305

REACTIONS (1)
  - Cytomegalovirus viraemia [Not Recovered/Not Resolved]

NARRATIVE: CASE EVENT DATE: 20210721
